FAERS Safety Report 9083526 (Version 1)
Quarter: 2013Q1

REPORT INFORMATION
  Report Type: Report from Study
  Country: US (occurrence: US)
  Receive Date: 20130130
  Receipt Date: 20130130
  Transmission Date: 20140127
  Serious: No
  Sender: FDA-Public Use
  Company Number: US-ABBOTT-12P-163-0953043-00

PATIENT
  Age: 62 Year
  Sex: Female

DRUGS (11)
  1. HUMIRA 40 MG/0.8 ML PEN [Suspect]
     Indication: CROHN^S DISEASE
     Dates: start: 20120430
  2. B12 [Concomitant]
     Indication: BLOOD IRON DECREASED
  3. LEVOTHYROXINE [Concomitant]
     Indication: HYPOTHYROIDISM
  4. POTASSIUM [Concomitant]
     Indication: MINERAL SUPPLEMENTATION
  5. SODIUM BICARBONATE [Concomitant]
     Indication: MINERAL SUPPLEMENTATION
  6. AZATHIOPRINE [Concomitant]
     Indication: CROHN^S DISEASE
  7. NEXIUM [Concomitant]
     Indication: GASTROOESOPHAGEAL REFLUX DISEASE
  8. DIOVAN [Concomitant]
     Indication: HYPERTENSION
  9. DIOVAN [Concomitant]
  10. ATENOLOL [Concomitant]
     Indication: HYPERTENSION
     Dosage: ONE DAILY AND ONE HALF TABLET AT NIGHT
  11. PRAVASTATIN [Concomitant]
     Indication: BLOOD CHOLESTEROL

REACTIONS (1)
  - Injection site pain [Recovered/Resolved]
